FAERS Safety Report 8167496 (Version 11)
Quarter: 2012Q4

REPORT INFORMATION
  Report Type: Report from Study
  Country: BE (occurrence: ES)
  Receive Date: 20111004
  Receipt Date: 20121213
  Transmission Date: 20130627
  Serious: Yes (Hospitalization)
  Sender: FDA-Public Use
  Company Number: ES-UCBSA-041844

PATIENT
  Age: 25 Year
  Sex: Male
  Weight: 90 kg

DRUGS (9)
  1. LACOSAMIDE [Suspect]
     Indication: PARTIAL SEIZURES
     Route: 048
     Dates: start: 20110826, end: 20110921
  2. LACOSAMIDE [Suspect]
     Indication: PARTIAL SEIZURES
     Dosage: DAILY DOSE 300 MG
     Route: 048
     Dates: start: 20110819, end: 20110825
  3. LACOSAMIDE [Suspect]
     Indication: PARTIAL SEIZURES
     Dosage: DAILY DOSE 200 MG
     Route: 048
     Dates: start: 20110812, end: 20110818
  4. LACOSAMIDE [Suspect]
     Indication: PARTIAL SEIZURES
     Dosage: DOSE 100 MG
     Route: 048
     Dates: start: 20110805, end: 20110811
  5. KEPPRA [Concomitant]
     Indication: EPILEPSY
     Route: 048
     Dates: start: 20080813
  6. LAMICTAL [Concomitant]
     Indication: EPILEPSY
     Route: 048
     Dates: start: 20100510
  7. AMOXICILLIN-CLAVULANATE [Concomitant]
     Indication: ODYNOPHAGIA
     Dosage: EVERY 8 HOURS
     Dates: start: 20110819, end: 20110921
  8. AMOXICILLIN-CLAVULANATE [Concomitant]
     Indication: PYREXIA
     Dosage: EVERY 8 HOURS
     Dates: start: 20110819, end: 20110921
  9. AMOXICILLIN-CLAVULANATE [Concomitant]
     Indication: MALAISE
     Dosage: EVERY 8 HOURS
     Dates: start: 20110819, end: 20110921

REACTIONS (1)
  - Agranulocytosis [Recovered/Resolved]
